FAERS Safety Report 16114411 (Version 1)
Quarter: 2019Q1

REPORT INFORMATION
  Report Type: Spontaneous
  Country: US (occurrence: US)
  Receive Date: 20190325
  Receipt Date: 20190325
  Transmission Date: 20190418
  Serious: No
  Sender: FDA-Public Use
  Company Number: US-ALLERGAN-1909405US

PATIENT
  Sex: Female

DRUGS (2)
  1. BI-EST [Concomitant]
     Route: 061
  2. LATISSE [Suspect]
     Active Substance: BIMATOPROST
     Indication: GROWTH OF EYELASHES
     Dosage: 2 GTT, QHS
     Route: 061

REACTIONS (4)
  - Cataract [Recovered/Resolved]
  - Drug ineffective [Unknown]
  - Wrist fracture [Unknown]
  - Product dose omission [Unknown]
